FAERS Safety Report 4530657-6 (Version None)
Quarter: 2004Q4

REPORT INFORMATION
  Report Type: 
  Country: None (occurrence: None)
  Receive Date: 20041217
  Receipt Date: 20040526
  Transmission Date: 20050328
  Serious: Yes (Hospitalization)
  Sender: FDA-Public Use
  Company Number: US-ABBOTT-04P-163-0262162-00

PATIENT
  Sex: Female
  Weight: 45.4 kg

DRUGS (16)
  1. HUMIRA [Suspect]
     Indication: RHEUMATOID ARTHRITIS
     Route: 058
     Dates: start: 20040211
  2. METHOTREXATE SODIUM [Concomitant]
     Indication: RHEUMATOID ARTHRITIS
     Route: 048
     Dates: start: 20010101
  3. CELECOXIB [Concomitant]
     Indication: RHEUMATOID ARTHRITIS
  4. AMITRIPTYLINE HCL [Concomitant]
     Indication: EYE DISORDER
     Route: 048
     Dates: start: 19990101
  5. FORTAO [Concomitant]
     Indication: OSTEOPOROSIS
     Route: 050
     Dates: start: 20040219, end: 20040930
  6. ATENOLOL [Concomitant]
     Indication: BLOOD PRESSURE
     Route: 048
  7. PENDEL [Concomitant]
     Indication: BLOOD PRESSURE
     Route: 048
  8. PREDNISONE [Concomitant]
     Indication: RHEUMATOID ARTHRITIS
     Route: 048
  9. PREDNISONE [Concomitant]
     Route: 048
  10. FOLIC ACID [Concomitant]
     Indication: RHEUMATOID ARTHRITIS
     Route: 048
  11. MULTIVITAMIN [Concomitant]
     Indication: DRUG USE FOR UNKNOWN INDICATION
     Route: 048
  12. CALCIUM [Concomitant]
     Indication: DRUG USE FOR UNKNOWN INDICATION
     Route: 048
  13. CALCITRIOL [Concomitant]
     Indication: DRUG USE FOR UNKNOWN INDICATION
     Route: 048
     Dates: start: 20040601, end: 20040601
  14. METHOCARBAMOL [Concomitant]
     Indication: DRUG USE FOR UNKNOWN INDICATION
     Route: 048
  15. RALOXIFENE HCL [Concomitant]
     Indication: OSTEOPOROSIS
     Dates: start: 20041001
  16. ALENDRONATE SODIUM [Concomitant]
     Indication: OSTEOPOROSIS
     Dates: start: 20041001

REACTIONS (7)
  - DISLOCATION OF JOINT PROSTHESIS [None]
  - DIZZINESS [None]
  - DRUG INEFFECTIVE [None]
  - DYSPNOEA [None]
  - FALL [None]
  - HEART RATE IRREGULAR [None]
  - SYNCOPE [None]
